FAERS Safety Report 7761844-1 (Version None)
Quarter: 2011Q3

REPORT INFORMATION
  Report Type: 
  Country: None (occurrence: None)
  Receive Date: 20110920
  Receipt Date: 20110914
  Transmission Date: 20111222
  Serious: Yes (Hospitalization)
  Sender: FDA-Public Use
  Company Number: FR-SANOFI-AVENTIS-2011SA059724

PATIENT
  Age: 53 Year
  Sex: Female

DRUGS (1)
  1. RIFATER [Suspect]
     Indication: DERMATITIS
     Route: 048
     Dates: start: 20110620, end: 20110720

REACTIONS (3)
  - VISUAL IMPAIRMENT [None]
  - CRANIAL NERVE PARALYSIS [None]
  - HEADACHE [None]
